FAERS Safety Report 9460713 (Version 1)
Quarter: 2013Q3

REPORT INFORMATION
  Report Type: Spontaneous
  Country: ES (occurrence: None)
  Receive Date: 20130813
  Receipt Date: 20130813
  Transmission Date: 20140515
  Serious: Yes (Hospitalization)
  Sender: FDA-Public Use
  Company Number: IMP_06747_2013

PATIENT
  Age: 65 Year
  Sex: Male

DRUGS (5)
  1. CABERGOLINE [Suspect]
     Indication: PARKINSON^S DISEASE
  2. LEVODOPA (UNKNOWN) [Concomitant]
  3. CARBIDOPA (UNKNOWN) [Concomitant]
  4. BENSERAZIDE (UNKNOWN) [Concomitant]
  5. ENTACAPONE (UNKNOWN) [Concomitant]

REACTIONS (6)
  - Orthopnoea [None]
  - Joint swelling [None]
  - Hypophonesis [None]
  - Cardiac failure [None]
  - Pleural fibrosis [None]
  - Drug effect decreased [None]
